FAERS Safety Report 4764735-3 (Version None)
Quarter: 2005Q3

REPORT INFORMATION
  Report Type: 
  Country: None (occurrence: None)
  Receive Date: 20050909
  Receipt Date: 20050607
  Transmission Date: 20060218
  Serious: Yes (Other)
  Sender: FDA-Public Use
  Company Number: US-MERCK-0506USA01411

PATIENT
  Age: 72 Year
  Sex: Female
  Weight: 105 kg

DRUGS (2)
  1. VIOXX [Suspect]
     Indication: ARTHRALGIA
     Route: 048
     Dates: start: 20000304, end: 20010101
  2. VIOXX [Suspect]
     Route: 048
     Dates: start: 20040101, end: 20041001

REACTIONS (19)
  - ANAEMIA POSTOPERATIVE [None]
  - ATHEROSCLEROSIS [None]
  - ATRIAL FIBRILLATION [None]
  - CARDIAC TAMPONADE [None]
  - CORONARY ARTERY DISEASE [None]
  - DIARRHOEA [None]
  - DRUG EFFECT DECREASED [None]
  - DRUG HYPERSENSITIVITY [None]
  - DYSPEPSIA [None]
  - FATIGUE [None]
  - HEART RATE INCREASED [None]
  - HYPERSENSITIVITY [None]
  - HYPERTROPHIC CARDIOMYOPATHY [None]
  - MITRAL VALVE INCOMPETENCE [None]
  - MUSCLE SPASMS [None]
  - MYOCARDIAL INFARCTION [None]
  - OEDEMA [None]
  - SHOULDER PAIN [None]
  - SUPRAVENTRICULAR TACHYCARDIA [None]
